FAERS Safety Report 10886429 (Version 10)
Quarter: 2016Q4

REPORT INFORMATION
  Report Type: Spontaneous
  Country: US (occurrence: US)
  Receive Date: 20150304
  Receipt Date: 20161031
  Transmission Date: 20170206
  Serious: Yes (Congenital Anomaly, Other)
  Sender: FDA-Public Use
  Company Number: US-APOTEX-2015AP007101

PATIENT
  Age: 0 Day
  Sex: Male

DRUGS (2)
  1. PAXIL [Suspect]
     Active Substance: PAROXETINE HYDROCHLORIDE
     Indication: ANXIETY
     Dosage: UNK
     Route: 064
     Dates: start: 199401, end: 199406
  2. PAXIL [Suspect]
     Active Substance: PAROXETINE HYDROCHLORIDE
     Indication: DEPRESSION
     Dosage: 20 MG, UNK
     Route: 064
     Dates: start: 199412, end: 19950131

REACTIONS (21)
  - Autism [Unknown]
  - Dandy-Walker syndrome [Unknown]
  - Cognitive disorder [Unknown]
  - Foetal exposure during pregnancy [Unknown]
  - Brain malformation [Unknown]
  - Congenital central nervous system anomaly [Unknown]
  - Periventricular nodular heterotopia [Unknown]
  - Epilepsy [Unknown]
  - Cerebellar hypoplasia [Unknown]
  - Congenital hydrocephalus [Unknown]
  - Developmental delay [Unknown]
  - Double cortex syndrome [Unknown]
  - Seizure [Unknown]
  - Migraine [Unknown]
  - Intellectual disability [Unknown]
  - Skull malformation [Unknown]
  - Autism spectrum disorder [Unknown]
  - Hypotonia neonatal [Unknown]
  - Partial seizures [Unknown]
  - Cerebellar dysplasia [Unknown]
  - Macrocephaly [Unknown]

NARRATIVE: CASE EVENT DATE: 19950131
